FAERS Safety Report 6505636-X (Version None)
Quarter: 2009Q4

REPORT INFORMATION
  Report Type: 
  Country: None (occurrence: None)
  Receive Date: 20091218
  Receipt Date: 20091209
  Transmission Date: 20100525
  Serious: Yes (Hospitalization)
  Sender: FDA-Public Use
  Company Number: GXKR2009US13288

PATIENT
  Age: 3 Year
  Sex: Male
  Weight: 19 kg

DRUGS (4)
  1. CLONIDINE (NGX) [Suspect]
     Indication: SLEEP TERROR
     Dosage: 0.1 MG, NIGHTLY DOSE
     Route: 065
  2. VALPROIC ACID [Concomitant]
     Indication: CONVULSION
     Dosage: 125MG EVERY MORNING AND 250MG AT NIGHT
     Route: 065
  3. VALPROIC ACID [Concomitant]
     Dosage: LOADED
     Route: 042
  4. LORAZEPAM [Concomitant]
     Indication: CONVULSION
     Dosage: 2 MG, UNK
     Route: 065

REACTIONS (10)
  - AGITATION [None]
  - DEPRESSED LEVEL OF CONSCIOUSNESS [None]
  - DRY MOUTH [None]
  - DYSPNOEA [None]
  - GAIT DISTURBANCE [None]
  - HYPERSOMNIA [None]
  - IRRITABILITY [None]
  - OVERDOSE [None]
  - SINUS BRADYCARDIA [None]
  - UNRESPONSIVE TO STIMULI [None]
